FAERS Safety Report 17226552 (Version 1)
Quarter: 2020Q1

REPORT INFORMATION
  Report Type: Spontaneous
  Country: US (occurrence: US)
  Receive Date: 20200102
  Receipt Date: 20200102
  Transmission Date: 20200409
  Serious: Yes (Hospitalization)
  Sender: FDA-Public Use
  Company Number: US-ACELLA PHARMACEUTICALS, LLC-2078446

PATIENT
  Age: 25 Year
  Sex: Male

DRUGS (1)
  1. BROMPHENIRAMINE MAL, PSEUDOEPHEDRINE HCL, AND DEXTROMETHORPHAN HBR (AN [Suspect]
     Active Substance: DEXBROMPHENIRAMINE MALEATE\DEXTROMETHORPHAN HYDROBROMIDE\PSEUDOEPHEDRINE HYDROCHLORIDE
     Indication: INTENTIONAL PRODUCT MISUSE
     Route: 065

REACTIONS (9)
  - Mydriasis [Unknown]
  - Dysuria [Unknown]
  - Agitation [Unknown]
  - Mental status changes [Unknown]
  - Erythema [Unknown]
  - Tachycardia [Unknown]
  - Vision blurred [Unknown]
  - Dry mouth [Unknown]
  - Dry skin [Unknown]
